FAERS Safety Report 14109646 (Version 1)
Quarter: 2017Q4

REPORT INFORMATION
  Report Type: Spontaneous
  Country: AU (occurrence: AU)
  Receive Date: 20171020
  Receipt Date: 20171020
  Transmission Date: 20180321
  Serious: Yes (Hospitalization)
  Sender: FDA-Public Use
  Company Number: AU-009507513-1710AUS009454

PATIENT
  Age: 50 Year
  Sex: Female
  Weight: 55.5 kg

DRUGS (4)
  1. OXALIPLATIN. [Suspect]
     Active Substance: OXALIPLATIN
     Dosage: 115 MG, ONCE
     Dates: start: 20170313, end: 20170313
  2. FOLINIC ACID [Suspect]
     Active Substance: LEUCOVORIN
     Dosage: 318 MG, ONCE
     Dates: start: 20170313, end: 20170313
  3. EMEND [Suspect]
     Active Substance: APREPITANT
     Dosage: 165 MG, ONCE
     Route: 048
     Dates: start: 20170313, end: 20170313
  4. DEXAMETHASONE. [Concomitant]
     Active Substance: DEXAMETHASONE

REACTIONS (5)
  - Nausea [Unknown]
  - Erythema [Unknown]
  - Vomiting [Unknown]
  - Pyrexia [Unknown]
  - Flushing [Unknown]

NARRATIVE: CASE EVENT DATE: 20170313
